FAERS Safety Report 19362465 (Version 1)
Quarter: 2021Q2

REPORT INFORMATION
  Report Type: Spontaneous
  Country: FR (occurrence: FR)
  Receive Date: 20210603
  Receipt Date: 20210603
  Transmission Date: 20210717
  Serious: Yes (Hospitalization)
  Sender: FDA-Public Use
  Company Number: FR-TEVA-2021-FR-1917093

PATIENT
  Age: 72 Year
  Sex: Male
  Weight: 141 kg

DRUGS (19)
  1. RAMIPRIL. [Concomitant]
     Active Substance: RAMIPRIL
  2. SPIRIVA [Concomitant]
     Active Substance: TIOTROPIUM BROMIDE MONOHYDRATE
  3. CLOPIDOGREL [Suspect]
     Active Substance: CLOPIDOGREL BISULFATE
     Indication: CORONARY ARTERY DISEASE
     Dosage: 75 MG
     Route: 048
     Dates: start: 20181015
  4. KARDEGIC [Suspect]
     Active Substance: ASPIRIN DL-LYSINE
     Indication: CORONARY ARTERY DISEASE
     Dosage: 1 DF
     Route: 048
     Dates: start: 20181015
  5. PARACETAMOL [Concomitant]
     Active Substance: ACETAMINOPHEN
  6. COLCHICINE. [Concomitant]
     Active Substance: COLCHICINE
  7. ALLOPURINOL. [Concomitant]
     Active Substance: ALLOPURINOL
  8. MOVICOL [Concomitant]
     Active Substance: POLYETHYLENE GLYCOL 3350\POTASSIUM CHLORIDE\SODIUM BICARBONATE\SODIUM CHLORIDE
  9. COUMADINE [Suspect]
     Active Substance: WARFARIN SODIUM
     Indication: ATRIAL FIBRILLATION
     Dosage: 2 DF
     Route: 048
     Dates: end: 20181109
  10. FUROSEMIDE. [Concomitant]
     Active Substance: FUROSEMIDE
  11. CALCIDOSE [Concomitant]
  12. ROSUVASTATINE [Concomitant]
     Active Substance: ROSUVASTATIN
  13. BISOPROLOL [Concomitant]
     Active Substance: BISOPROLOL
  14. DIFFU K [Concomitant]
     Active Substance: POTASSIUM CHLORIDE
  15. TRAMADOL. [Concomitant]
     Active Substance: TRAMADOL
  16. SYMBICORT [Concomitant]
     Active Substance: BUDESONIDE\FORMOTEROL FUMARATE DIHYDRATE
  17. LANTUS [Concomitant]
     Active Substance: INSULIN GLARGINE
  18. PREGABALINE [Concomitant]
     Active Substance: PREGABALIN
  19. URAPIDIL [Concomitant]
     Active Substance: URAPIDIL

REACTIONS (2)
  - Anaemia [Recovered/Resolved]
  - Rectal haemorrhage [Recovered/Resolved]

NARRATIVE: CASE EVENT DATE: 201811
